FAERS Safety Report 8408459-X (Version None)
Quarter: 2012Q2

REPORT INFORMATION
  Report Type: 
  Country: None (occurrence: None)
  Receive Date: 20120604
  Receipt Date: 20120524
  Transmission Date: 20120825
  Serious: Yes (Hospitalization)
  Sender: FDA-Public Use
  Company Number: US-PERRIGO-12US004720

PATIENT
  Sex: Female

DRUGS (2)
  1. MINOXIDIL (FOR WOMEN) [Suspect]
     Indication: FOETAL EXPOSURE DURING PREGNANCY
     Dosage: UNK, UNK
     Route: 015
     Dates: start: 20110427, end: 20110530
  2. MINOXIDIL (FOR WOMEN) [Suspect]
     Dosage: UNK, UNK
     Route: 015
     Dates: start: 20110427, end: 20110530

REACTIONS (3)
  - ULTRASOUND ANTENATAL SCREEN ABNORMAL [None]
  - FOETAL EXPOSURE DURING PREGNANCY [None]
  - GASTROINTESTINAL MOTILITY DISORDER [None]
